FAERS Safety Report 7380395-X (Version None)
Quarter: 2011Q1

REPORT INFORMATION
  Report Type: 
  Country: None (occurrence: None)
  Receive Date: 20110329
  Receipt Date: 20110315
  Transmission Date: 20110831
  Serious: Yes (Hospitalization)
  Sender: FDA-Public Use
  Company Number: IT-ROCHE-766819

PATIENT
  Sex: Male

DRUGS (1)
  1. SYNFLEX [Suspect]
     Route: 048
     Dates: start: 20110313, end: 20110313

REACTIONS (4)
  - DYSPHAGIA [None]
  - VOMITING [None]
  - PRURITUS GENERALISED [None]
  - DIARRHOEA [None]
